FAERS Safety Report 8069013-5 (Version None)
Quarter: 2012Q1

REPORT INFORMATION
  Report Type: 
  Country: None (occurrence: None)
  Receive Date: 20120118
  Receipt Date: 20120106
  Transmission Date: 20120608
  Serious: Yes (Death, Hospitalization)
  Sender: FDA-Public Use
  Company Number: 2012AM005970

PATIENT
  Age: 67 Year
  Sex: Male

DRUGS (3)
  1. LEVEMIR [Concomitant]
  2. SYMLIN [Suspect]
     Indication: TYPE 2 DIABETES MELLITUS
     Dosage: ;SC
     Route: 058
  3. HUMALOG [Concomitant]

REACTIONS (3)
  - PAIN [None]
  - ROTATOR CUFF REPAIR [None]
  - RESPIRATORY DISTRESS [None]
